FAERS Safety Report 25263008 (Version 3)
Quarter: 2025Q2

REPORT INFORMATION
  Report Type: Report from Study
  Country: US (occurrence: US)
  Receive Date: 20250502
  Receipt Date: 20250530
  Transmission Date: 20250717
  Serious: Yes (Other)
  Sender: BAYER HEALTHCARE PHARMACEUTICALS INC.
  Company Number: US-BAYER-2025A056399

PATIENT
  Age: 81 Year
  Sex: Male
  Weight: 95.238 kg

DRUGS (25)
  1. ADEMPAS [Suspect]
     Active Substance: RIOCIGUAT
     Indication: Pulmonary arterial hypertension
     Route: 048
     Dates: start: 20250328
  2. ADEMPAS [Suspect]
     Active Substance: RIOCIGUAT
     Indication: Pulmonary arterial hypertension
     Dosage: 1 MG, TID
     Route: 048
  3. ADEMPAS [Suspect]
     Active Substance: RIOCIGUAT
     Indication: Pulmonary arterial hypertension
     Dosage: 1.5 MG, TID
     Route: 048
  4. ATORVASTATIN CALCIUM [Concomitant]
     Active Substance: ATORVASTATIN CALCIUM
  5. CARVEDILOL [Concomitant]
     Active Substance: CARVEDILOL
  6. FOLIC ACID [Concomitant]
     Active Substance: FOLIC ACID
  7. PRAZOSIN HYDROCHLORIDE [Concomitant]
     Active Substance: PRAZOSIN HYDROCHLORIDE
  8. TELMISARTAN [Concomitant]
     Active Substance: TELMISARTAN
  9. KETOCONAZOLE [Concomitant]
     Active Substance: KETOCONAZOLE
  10. ELIQUIS [Concomitant]
     Active Substance: APIXABAN
  11. VITAMIN D2 [Concomitant]
     Active Substance: ERGOCALCIFEROL
  12. SERTRALINE HYDROCHLORIDE [Concomitant]
     Active Substance: SERTRALINE HYDROCHLORIDE
  13. HERBALS\TURMERIC [Concomitant]
     Active Substance: HERBALS\TURMERIC
  14. FENOFIBRATE [Concomitant]
     Active Substance: FENOFIBRATE
  15. LATANOPROST [Concomitant]
     Active Substance: LATANOPROST
  16. LEVOTHYROXINE SODIUM [Concomitant]
     Active Substance: LEVOTHYROXINE SODIUM
  17. AMLODIPINE BESYLATE [Concomitant]
     Active Substance: AMLODIPINE BESYLATE
  18. ACETAMINOPHEN [Concomitant]
     Active Substance: ACETAMINOPHEN
  19. FINASTERIDE [Concomitant]
     Active Substance: FINASTERIDE
  20. METFORMIN HYDROCHLORIDE [Concomitant]
     Active Substance: METFORMIN HYDROCHLORIDE
  21. CLOTRIMAZOLE [Concomitant]
     Active Substance: CLOTRIMAZOLE
  22. TORSEMIDE [Suspect]
     Active Substance: TORSEMIDE
  23. B12 active [Concomitant]
  24. IRON [Concomitant]
     Active Substance: IRON
  25. CREON [Concomitant]
     Active Substance: PANCRELIPASE AMYLASE\PANCRELIPASE LIPASE\PANCRELIPASE PROTEASE

REACTIONS (6)
  - Atrial fibrillation [None]
  - Heart rate increased [None]
  - Fatigue [None]
  - Weight increased [Not Recovered/Not Resolved]
  - Weight decreased [None]
  - Enzyme level decreased [None]

NARRATIVE: CASE EVENT DATE: 20250101
